FAERS Safety Report 8186502-3 (Version None)
Quarter: 2012Q1

REPORT INFORMATION
  Report Type: 
  Country: None (occurrence: None)
  Receive Date: 20120302
  Receipt Date: 20120302
  Transmission Date: 20120608
  Serious: No
  Sender: FDA-Public Use
  Company Number: None

PATIENT
  Sex: Female
  Weight: 54.4316 kg

DRUGS (2)
  1. ZITHROMAX [Suspect]
     Indication: CYSTIC FIBROSIS
     Dosage: 1 TSP 3X A WEEK
  2. ZITHROMAX [Suspect]
     Indication: LUNG INFECTION
     Dosage: 1 TSP 3X A WEEK

REACTIONS (2)
  - PRODUCT SUBSTITUTION ISSUE [None]
  - DRUG INEFFECTIVE [None]
